FAERS Safety Report 22180552 (Version 1)
Quarter: 2023Q2

REPORT INFORMATION
  Report Type: Spontaneous
  Country: GB (occurrence: GB)
  Receive Date: 20230406
  Receipt Date: 20230406
  Transmission Date: 20230721
  Serious: Yes (Hospitalization, Other)
  Sender: FDA-Public Use
  Company Number: GB-MHRA-MED-202303301018034370-KQNRS

PATIENT

DRUGS (1)
  1. NIQUITIN [Suspect]
     Active Substance: NICOTINE
     Indication: Adverse drug reaction
     Dosage: 21MG; ;
     Route: 065

REACTIONS (2)
  - Dehydration [Recovering/Resolving]
  - Rash [Recovering/Resolving]
